FAERS Safety Report 13612619 (Version 3)
Quarter: 2017Q2

REPORT INFORMATION
  Report Type: Spontaneous
  Country: US (occurrence: US)
  Receive Date: 20170605
  Receipt Date: 20170608
  Transmission Date: 20170830
  Serious: No
  Sender: FDA-Public Use
  Company Number: US-TEVA-775499ACC

PATIENT
  Age: 20 Year
  Sex: Female
  Weight: 61.74 kg

DRUGS (1)
  1. PLAN B ONE-STEP [Suspect]
     Active Substance: LEVONORGESTREL
     Indication: POST COITAL CONTRACEPTION
     Dates: start: 20170520, end: 20170520

REACTIONS (6)
  - Nausea [Recovered/Resolved]
  - Abdominal distension [Recovering/Resolving]
  - Dysmenorrhoea [Recovered/Resolved]
  - Breast tenderness [Recovering/Resolving]
  - Back pain [Recovering/Resolving]
  - Vaginal haemorrhage [Recovered/Resolved]

NARRATIVE: CASE EVENT DATE: 201705
